FAERS Safety Report 7243964-3 (Version None)
Quarter: 2011Q1

REPORT INFORMATION
  Report Type: 
  Country: None (occurrence: None)
  Receive Date: 20110125
  Receipt Date: 20110112
  Transmission Date: 20110831
  Serious: Yes (Other)
  Sender: FDA-Public Use
  Company Number: PHHY2011US02856

PATIENT
  Age: 59 Year
  Sex: Female

DRUGS (7)
  1. CALCIUM [Concomitant]
  2. FISH OIL [Concomitant]
  3. ASPIRIN [Concomitant]
  4. MULTI-VITAMINS [Concomitant]
  5. RECLAST [Suspect]
     Dosage: 5 MG /100 ML ANNUALY
  6. GLYCOMINE FOR JOINTS [Concomitant]
  7. LEVOTHYROXINE SODIUM [Concomitant]

REACTIONS (2)
  - BONE DENSITY ABNORMAL [None]
  - TOOTH DISORDER [None]
